FAERS Safety Report 9731863 (Version 1)
Quarter: 2013Q4

REPORT INFORMATION
  Report Type: Spontaneous
  Country: US (occurrence: None)
  Receive Date: 20131203
  Receipt Date: 20131203
  Transmission Date: 20140711
  Serious: Yes (Death)
  Sender: FDA-Public Use
  Company Number: US-ALKEM-000399

PATIENT
  Age: 35 Year
  Sex: Male

DRUGS (2)
  1. AMLODIPINE (AMLODIPINE) [Suspect]
  2. QUETIAPINE (QUETIAPINE) [Suspect]

REACTIONS (1)
  - Completed suicide [None]
